FAERS Safety Report 25949206 (Version 1)
Quarter: 2025Q4

REPORT INFORMATION
  Report Type: Report from Study
  Country: PA (occurrence: PA)
  Receive Date: 20251022
  Receipt Date: 20251022
  Transmission Date: 20260118
  Serious: Yes (Other)
  Sender: NOVARTIS
  Company Number: PA-002147023-NVSC2025PA124134

PATIENT
  Age: 72 Year
  Sex: Female

DRUGS (4)
  1. KISQALI [Suspect]
     Active Substance: RIBOCICLIB SUCCINATE
     Indication: Breast cancer metastatic
     Dosage: 600 MG, QD 3 DOSAGE FORMS,(BY MOUTH) (DAILY / FOR 21 DAYS)
     Route: 048
     Dates: start: 20250701
  2. KISQALI [Suspect]
     Active Substance: RIBOCICLIB SUCCINATE
     Indication: Metastases to bone
     Dosage: 2 DOSAGE FORM (400 MG), QD
     Route: 065
     Dates: start: 20250819
  3. KISQALI [Suspect]
     Active Substance: RIBOCICLIB SUCCINATE
     Dosage: 400 MG, QD
     Route: 048
  4. KISQALI [Suspect]
     Active Substance: RIBOCICLIB SUCCINATE
     Dosage: 1 DOSAGE FORM, QD (1 OF 200 MG)
     Route: 065

REACTIONS (15)
  - Tumour marker decreased [Unknown]
  - Haemoglobin decreased [Recovering/Resolving]
  - Rash [Recovered/Resolved]
  - Nausea [Recovered/Resolved]
  - Somnolence [Not Recovered/Not Resolved]
  - Urticaria [Recovering/Resolving]
  - Rash macular [Unknown]
  - Decreased appetite [Recovering/Resolving]
  - Pruritus [Recovering/Resolving]
  - White blood cell count decreased [Not Recovered/Not Resolved]
  - Alopecia [Unknown]
  - Chills [Recovering/Resolving]
  - Decreased immune responsiveness [Unknown]
  - Drug intolerance [Unknown]
  - Affective disorder [Recovering/Resolving]

NARRATIVE: CASE EVENT DATE: 20250722
